FAERS Safety Report 20888844 (Version 1)
Quarter: 2022Q2

REPORT INFORMATION
  Report Type: Spontaneous
  Country: US (occurrence: US)
  Receive Date: 20220529
  Receipt Date: 20220529
  Transmission Date: 20220721
  Serious: Yes (Hospitalization)
  Sender: FDA-Public Use
  Company Number: None

PATIENT
  Age: 62 Year
  Sex: Male
  Weight: 74.3 kg

DRUGS (13)
  1. POMALIDOMIDE [Suspect]
     Active Substance: POMALIDOMIDE
     Indication: Plasma cell myeloma
     Route: 048
     Dates: start: 202102
  2. FISH OIL [Concomitant]
     Active Substance: FISH OIL
  3. AMITRIPTYLINE HYDROCHLORIDE [Concomitant]
     Active Substance: AMITRIPTYLINE HYDROCHLORIDE
  4. AZITHROMYCIN [Concomitant]
     Active Substance: AZITHROMYCIN
  5. CLOBETASOL [Concomitant]
     Active Substance: CLOBETASOL
  6. CRESTOR [Concomitant]
     Active Substance: ROSUVASTATIN CALCIUM
  7. DOXYCYCLINE HYCLATE [Concomitant]
     Active Substance: DOXYCYCLINE HYCLATE
  8. FINACEA [Concomitant]
     Active Substance: AZELAIC ACID
  9. GABAPENTIN [Concomitant]
     Active Substance: GABAPENTIN
  10. NEXIUM [Concomitant]
     Active Substance: ESOMEPRAZOLE MAGNESIUM
  11. SODIUM SULFACETAMIDE [Concomitant]
     Active Substance: SULFACETAMIDE SODIUM
  12. TRAMADOL [Concomitant]
     Active Substance: TRAMADOL
  13. CLINDAMYCIN [Concomitant]
     Active Substance: CLINDAMYCIN

REACTIONS (3)
  - Adverse event [Unknown]
  - Pyrexia [Unknown]
  - Product dose omission issue [Unknown]
